FAERS Safety Report 6252506-0 (Version None)
Quarter: 2009Q3

REPORT INFORMATION
  Report Type: 
  Country: None (occurrence: None)
  Receive Date: 20090701
  Receipt Date: 20090624
  Transmission Date: 20100115
  Serious: Yes (Other)
  Sender: FDA-Public Use
  Company Number: US-ASTRAZENECA-2009UW17528

PATIENT
  Age: 93 Year
  Sex: Female
  Weight: 56.2 kg

DRUGS (2)
  1. NEXIUM [Suspect]
     Route: 048
  2. BLOOD PRESSURE MED [Concomitant]

REACTIONS (7)
  - CEREBROVASCULAR ACCIDENT [None]
  - DYSPHAGIA [None]
  - GALLBLADDER OPERATION [None]
  - INTESTINAL FUNCTIONAL DISORDER [None]
  - POLYP [None]
  - WEIGHT DECREASED [None]
  - WEIGHT INCREASED [None]
